FAERS Safety Report 5456848-8 (Version None)
Quarter: 2007Q3

REPORT INFORMATION
  Report Type: 
  Country: None (occurrence: None)
  Receive Date: 20070917
  Receipt Date: 20070917
  Transmission Date: 20080115
  Serious: Yes (Disabling, Other)
  Sender: FDA-Public Use
  Company Number: None

PATIENT
  Sex: Female
  Weight: 54.4316 kg

DRUGS (1)
  1. PAXIL [Suspect]
     Dates: start: 20060201, end: 20060301

REACTIONS (6)
  - ANXIETY [None]
  - BRUXISM [None]
  - MENTAL IMPAIRMENT [None]
  - PSYCHIATRIC SYMPTOM [None]
  - THINKING ABNORMAL [None]
  - TOOTH DISORDER [None]
